FAERS Safety Report 16820290 (Version 1)
Quarter: 2019Q3

REPORT INFORMATION
  Report Type: Spontaneous
  Country: US (occurrence: US)
  Receive Date: 20190918
  Receipt Date: 20190918
  Transmission Date: 20191005
  Serious: Yes (Hospitalization, Other)
  Sender: FDA-Public Use
  Company Number: US-HIKMA PHARMACEUTICALS USA INC.-US-H14001-19-46931

PATIENT
  Age: 10 Year
  Sex: Male

DRUGS (5)
  1. CITALOPRAM [Concomitant]
     Active Substance: CITALOPRAM HYDROBROMIDE
     Indication: PRODUCT USED FOR UNKNOWN INDICATION
     Route: 065
  2. METHYLPHENIDATE HYDROCHLORIDE. [Concomitant]
     Active Substance: METHYLPHENIDATE HYDROCHLORIDE
     Indication: PRODUCT USED FOR UNKNOWN INDICATION
     Route: 062
  3. ROPINIROLE. [Suspect]
     Active Substance: ROPINIROLE
     Indication: ATTENTION DEFICIT/HYPERACTIVITY DISORDER
     Route: 065
  4. ROPINIROLE. [Suspect]
     Active Substance: ROPINIROLE
     Indication: AFFECTIVE DISORDER
  5. LAMOTRIGINE. [Concomitant]
     Active Substance: LAMOTRIGINE
     Indication: PRODUCT USED FOR UNKNOWN INDICATION
     Route: 065

REACTIONS (9)
  - Urinary incontinence [Recovered/Resolved]
  - Wrong product administered [Recovering/Resolving]
  - Irritability [Recovering/Resolving]
  - Increased appetite [Recovering/Resolving]
  - Thirst [Recovering/Resolving]
  - Movement disorder [Recovering/Resolving]
  - Product dispensing error [Recovering/Resolving]
  - Pruritus [Recovering/Resolving]
  - Hallucination, visual [Recovering/Resolving]
